FAERS Safety Report 5514678-2 (Version None)
Quarter: 2007Q4

REPORT INFORMATION
  Report Type: 
  Country: None (occurrence: None)
  Receive Date: 20071113
  Receipt Date: 20071105
  Transmission Date: 20080405
  Serious: Yes (Other)
  Sender: FDA-Public Use
  Company Number: DE-PFIZER INC-2007089356

PATIENT
  Sex: Male

DRUGS (5)
  1. VIAGRA [Suspect]
  2. OPHTHALMOLOGICALS [Concomitant]
  3. BETA-ADRENORECEPTOR ANTAGONIST [Concomitant]
  4. DORZOLAMIDE [Concomitant]
  5. LATANOPROST [Concomitant]

REACTIONS (2)
  - GLAUCOMA [None]
  - NORMAL TENSION GLAUCOMA [None]
